FAERS Safety Report 13876686 (Version 1)
Quarter: 2017Q3

REPORT INFORMATION
  Report Type: Spontaneous
  Country: US (occurrence: None)
  Receive Date: 20170814
  Receipt Date: 20170814
  Transmission Date: 20171127
  Serious: Yes (Hospitalization)
  Sender: FDA-Public Use
  Company Number: None

PATIENT
  Age: 71 Year
  Sex: Male
  Weight: 56.56 kg

DRUGS (20)
  1. CELEBREX [Concomitant]
     Active Substance: CELECOXIB
  2. DIPHENHYDRAMINE MAALOX-LIDOCAINE BMX [Concomitant]
  3. CLARITIN [Concomitant]
     Active Substance: LORATADINE
  4. LIPITOR [Concomitant]
     Active Substance: ATORVASTATIN CALCIUM
  5. XANAX [Concomitant]
     Active Substance: ALPRAZOLAM
  6. OPDIVO [Suspect]
     Active Substance: NIVOLUMAB
     Indication: NON-SMALL CELL LUNG CANCER STAGE IV
     Route: 042
     Dates: start: 20170726, end: 20170810
  7. NEURONTIN [Concomitant]
     Active Substance: GABAPENTIN
  8. HEPARIN [Concomitant]
     Active Substance: HEPARIN SODIUM
  9. MIRALAX [Concomitant]
     Active Substance: POLYETHYLENE GLYCOL 3350
  10. ENSURE SUPPLEMENT DRINK [Concomitant]
  11. MEGESTROL (MEGACE) [Concomitant]
  12. DECITABINE. [Suspect]
     Active Substance: DECITABINE
     Indication: NON-SMALL CELL LUNG CANCER STAGE IV
     Dosage: 15MG/750 MG 2XWEEK.... DAY, ORAL
     Route: 048
     Dates: start: 20170726, end: 20170810
  13. TETRAHYDROURIDINE [Suspect]
     Active Substance: TETRAHYDROURIDINE
  14. MORPHINE SE (MS CONTIN, ORAMORPH SR) [Concomitant]
  15. DRONABINOL (MSTINOL) [Concomitant]
  16. SYNTHROID [Concomitant]
     Active Substance: LEVOTHYROXINE SODIUM
  17. OXYCODONE IR (ROXICODONE) [Concomitant]
  18. CELEXA [Concomitant]
     Active Substance: CITALOPRAM HYDROBROMIDE
  19. METFORMIN (GLUCOPHAGE) [Concomitant]
  20. OLANZAPINE (ZYPREXA) [Concomitant]

REACTIONS (2)
  - Supraventricular tachycardia [None]
  - Dehydration [None]

NARRATIVE: CASE EVENT DATE: 20170813
